FAERS Safety Report 4285713-7 (Version None)
Quarter: 2004Q1

REPORT INFORMATION
  Report Type: 
  Country: None (occurrence: None)
  Receive Date: 20040203
  Receipt Date: 20040122
  Transmission Date: 20041129
  Serious: Yes (Hospitalization)
  Sender: FDA-Public Use
  Company Number: K200400078

PATIENT
  Age: 71 Year
  Sex: Female

DRUGS (14)
  1. ALTACE [Suspect]
     Indication: HYPERTENSION
     Dosage: 5 MG, QD, ORAL
     Route: 048
     Dates: start: 20030501
  2. FELODIPINE [Suspect]
     Indication: HYPERTENSION
     Dosage: 5 MG, QD, ORAL
     Route: 048
     Dates: start: 20030501
  3. DIGITOXIN TAB [Suspect]
     Indication: CARDIAC FAILURE
     Dosage: 0.07 MG, QD, ORAL; 0.05 MG, QD, ORAL
     Route: 048
     Dates: end: 20030701
  4. DIGITOXIN TAB [Suspect]
     Indication: CARDIAC FAILURE
     Dosage: 0.07 MG, QD, ORAL; 0.05 MG, QD, ORAL
     Route: 048
     Dates: start: 20030730
  5. CARVEDILOL [Suspect]
     Indication: HYPERTENSION
     Dosage: 12.5 MG, QD, ORAL
     Route: 048
     Dates: end: 20030727
  6. INSULIN ACTRAPID HUMAN (INSULIN HUMAN) SOLUTION [Concomitant]
  7. ANTI-KALIUM (CALCIUM POLYSTYRENE SULFONATE) [Concomitant]
  8. ANTI-PHOSPHAT (ALUMINUM HYDROXIDE GEL) TABLET [Concomitant]
  9. ASS ^HEXAL^ (ACETYLSALICYLIC ACID) TABLET [Concomitant]
  10. BONDIOL (ALFACALCIDIOL) CAPSULE [Concomitant]
  11. FURESIS (FUROSEMIDE) TABLET [Concomitant]
  12. PROTAPHAN (INSULIN ISOPHANE, HUMAN BIOSYNTHETIC) SOLUTION [Concomitant]
  13. SORTIS ^PARKE-DAVIS^ (ATORVASTATIN CALCIUM) TABLET [Concomitant]
  14. ZOLPIDEM TARTRATE [Concomitant]

REACTIONS (17)
  - ABDOMINAL PAIN [None]
  - ANGINA PECTORIS [None]
  - BLOOD CREATININE INCREASED [None]
  - BLOOD FIBRINOGEN DECREASED [None]
  - BLOOD GLUCOSE INCREASED [None]
  - BLOOD PRESSURE INCREASED [None]
  - BLOOD SODIUM DECREASED [None]
  - BRADYARRHYTHMIA [None]
  - BRADYCARDIA [None]
  - C-REACTIVE PROTEIN INCREASED [None]
  - CREATINE PHOSPHOKINASE DECREASED [None]
  - DIALYSIS [None]
  - HAEMATOCRIT DECREASED [None]
  - HAEMOGLOBIN DECREASED [None]
  - HYPERKALAEMIA [None]
  - TROPONIN I [None]
  - WHITE BLOOD CELL COUNT INCREASED [None]
